FAERS Safety Report 9369587 (Version 1)
Quarter: 2013Q2

REPORT INFORMATION
  Report Type: Spontaneous
  Country: US (occurrence: US)
  Receive Date: 20130626
  Receipt Date: 20130626
  Transmission Date: 20140414
  Serious: No
  Sender: FDA-Public Use
  Company Number: US-MYLANLABS-2012S1018942

PATIENT
  Age: 63 Year
  Sex: Male
  Weight: 89.36 kg

DRUGS (6)
  1. PERFOROMIST (FORMOTEROL FUMARATE) INHALATION SOLUTION [Suspect]
     Indication: CHRONIC OBSTRUCTIVE PULMONARY DISEASE
     Route: 055
     Dates: start: 20120806, end: 20120813
  2. PERFOROMIST (FORMOTEROL FUMARATE) INHALATION SOLUTION [Suspect]
     Indication: CHRONIC OBSTRUCTIVE PULMONARY DISEASE
     Route: 055
     Dates: start: 20120815, end: 2012
  3. ADVAIR [Concomitant]
  4. ALBUTEROL [Concomitant]
  5. DUONEB [Concomitant]
  6. PROVENTIL [Concomitant]

REACTIONS (1)
  - Pruritus [Not Recovered/Not Resolved]
